FAERS Safety Report 8666193 (Version 2)
Quarter: 2012Q4

REPORT INFORMATION
  Report Type: 
  Country: JP (occurrence: JP)
  Receive Date: 20120716
  Receipt Date: 20120921
  Transmission Date: 20130627
  Serious: Yes (Other)
  Sender: FDA-Public Use
  Company Number: JP-ROCHE-1083535

PATIENT
  Age: 55 Year
  Sex: Female
  Weight: 70 kg

DRUGS (5)
  1. AVASTIN [Suspect]
     Indication: LUNG ADENOCARCINOMA METASTATIC
     Dosage: Dosage is uncertain.
     Route: 041
     Dates: start: 20120106, end: 20120413
  2. AVASTIN [Suspect]
     Indication: LUNG ADENOCARCINOMA METASTATIC
     Route: 041
     Dates: start: 20120515, end: 20120622
  3. ALIMTA [Concomitant]
     Indication: LUNG ADENOCARCINOMA METASTATIC
     Dosage: Dosage is uncertain.
     Route: 041
     Dates: start: 20120106, end: 20120413
  4. ALIMTA [Concomitant]
     Indication: LUNG ADENOCARCINOMA METASTATIC
     Route: 041
     Dates: start: 20120515, end: 20120622
  5. CARBOPLATIN [Concomitant]
     Indication: LUNG ADENOCARCINOMA METASTATIC
     Dosage: Dosage is uncertain.
     Route: 041
     Dates: start: 20120106, end: 20120413

REACTIONS (3)
  - Peritonitis [Recovered/Resolved]
  - Malignant ascites [Unknown]
  - Intestinal perforation [Unknown]
